FAERS Safety Report 5851551-4 (Version None)
Quarter: 2008Q3

REPORT INFORMATION
  Report Type: 
  Country: None (occurrence: None)
  Receive Date: 20080820
  Receipt Date: 20080808
  Transmission Date: 20090109
  Serious: Yes (Other)
  Sender: FDA-Public Use
  Company Number: GB-ROCHE-580271

PATIENT
  Age: 47 Year
  Sex: Female

DRUGS (6)
  1. COPEGUS [Suspect]
     Route: 048
     Dates: start: 20070729, end: 20080106
  2. PEG-INTERFERON ALFA 2B [Suspect]
     Route: 058
     Dates: start: 20070729, end: 20080106
  3. CARBIMAZOLE [Concomitant]
  4. DIAZEPAM [Concomitant]
  5. LEVOTHYROXINE SODIUM [Concomitant]
  6. PROPRANOLOL [Concomitant]

REACTIONS (5)
  - AGITATION [None]
  - HYPERTHYROIDISM [None]
  - INFLUENZA [None]
  - MASS [None]
  - WITHDRAWAL SYNDROME [None]
